FAERS Safety Report 7798592-8 (Version None)
Quarter: 2011Q4

REPORT INFORMATION
  Report Type: 
  Country: None (occurrence: None)
  Receive Date: 20111005
  Receipt Date: 20110927
  Transmission Date: 20120403
  Serious: Yes (Other)
  Sender: FDA-Public Use
  Company Number: US-RB-031233-11

PATIENT
  Age: 29 Year
  Sex: Female

DRUGS (5)
  1. KLONOPIN [Suspect]
     Indication: SLEEP DISORDER
     Route: 048
     Dates: end: 20110801
  2. CYMBALTA [Concomitant]
     Indication: PRODUCT USED FOR UNKNOWN INDICATION
  3. SUBOXONE [Suspect]
     Indication: PAIN
     Route: 060
     Dates: start: 20110101, end: 20110801
  4. SUBOXONE [Suspect]
     Indication: PAIN
     Dosage: SUBOXONE FILM STRIPS
     Route: 060
     Dates: start: 20110801
  5. ADDERALL 5 [Concomitant]
     Indication: PRODUCT USED FOR UNKNOWN INDICATION

REACTIONS (8)
  - HYPERVENTILATION [None]
  - OFF LABEL USE [None]
  - SUBSTANCE ABUSE [None]
  - LOSS OF CONSCIOUSNESS [None]
  - DIARRHOEA [None]
  - WEIGHT DECREASED [None]
  - FATIGUE [None]
  - HYPERHIDROSIS [None]
